FAERS Safety Report 6695422-2 (Version None)
Quarter: 2010Q2

REPORT INFORMATION
  Report Type: 
  Country: None (occurrence: None)
  Receive Date: 20100422
  Receipt Date: 20100422
  Transmission Date: 20101027
  Serious: Yes (Life-Threatening, Hospitalization, Disabling)
  Sender: FDA-Public Use
  Company Number: None

PATIENT
  Sex: Female
  Weight: 68.0396 kg

DRUGS (1)
  1. SYNTHROID [Suspect]
     Dosage: 50 MG DAILY
     Dates: start: 20090729

REACTIONS (4)
  - EYE SWELLING [None]
  - PALPITATIONS [None]
  - RASH [None]
  - URINARY TRACT INFECTION [None]
